FAERS Safety Report 9209209 (Version 2)
Quarter: 2013Q2

REPORT INFORMATION
  Report Type: Spontaneous
  Country: IT (occurrence: IT)
  Receive Date: 20130404
  Receipt Date: 20130516
  Transmission Date: 20140414
  Serious: Yes (Other)
  Sender: FDA-Public Use
  Company Number: IT-EISAI INC-E7389-03686-SPO-IT

PATIENT
  Age: 59 Year
  Sex: Female
  Weight: 45 kg

DRUGS (11)
  1. HALAVEN [Suspect]
     Indication: BREAST CANCER
     Route: 041
     Dates: start: 20130206
  2. SOLDESAM [Concomitant]
     Indication: PREMEDICATION
     Route: 042
     Dates: start: 20130206, end: 20130227
  3. RANIDIL [Concomitant]
     Indication: GASTROOESOPHAGEAL REFLUX PROPHYLAXIS
     Route: 042
     Dates: start: 20130206, end: 20130227
  4. ONDANSETRON [Concomitant]
     Indication: ANTIEMETIC SUPPORTIVE CARE
     Route: 042
     Dates: start: 20130206, end: 20130227
  5. FLUIMUCIL [Concomitant]
     Route: 048
  6. BREVA [Concomitant]
     Route: 048
  7. ALBUNORM [Concomitant]
     Route: 042
  8. CLENIL [Concomitant]
     Dosage: 0.8 MG + 1.6 MG
  9. FLUIBRON [Concomitant]
     Dosage: 15 MG/2ML
  10. ANTRA [Concomitant]
     Route: 048
  11. LIBENAR [Concomitant]

REACTIONS (5)
  - Fluid retention [Recovered/Resolved]
  - Dizziness [Recovered/Resolved]
  - Asthenia [Recovered/Resolved]
  - Constipation [Recovered/Resolved]
  - Dyspnoea [Recovered/Resolved]
